FAERS Safety Report 5151932-0 (Version None)
Quarter: 2006Q4

REPORT INFORMATION
  Report Type: 
  Country: None (occurrence: None)
  Receive Date: 20061107
  Receipt Date: 20061023
  Transmission Date: 20070319
  Serious: Yes (Death)
  Sender: FDA-Public Use
  Company Number: B0443295A

PATIENT
  Age: 50 Year
  Sex: 0

DRUGS (3)
  1. PAXIL [Suspect]
  2. QUETIAPINE FUMARATE [Suspect]
     Dosage: ORAL
     Route: 048
  3. CLONAZEPAM [Suspect]

REACTIONS (3)
  - CARDIO-RESPIRATORY ARREST [None]
  - COMPLETED SUICIDE [None]
  - DRUG LEVEL ABOVE THERAPEUTIC [None]
